FAERS Safety Report 9774250 (Version 3)
Quarter: 2014Q1

REPORT INFORMATION
  Report Type: Spontaneous
  Country: DE (occurrence: DE)
  Receive Date: 20131220
  Receipt Date: 20140130
  Transmission Date: 20141002
  Serious: Yes (Death, Other)
  Sender: FDA-Public Use
  Company Number: DE-JNJFOC-20131205766

PATIENT
  Age: 9 Decade
  Sex: Male
  Weight: 77 kg

DRUGS (5)
  1. ZYTIGA [Suspect]
     Indication: PROSTATE CANCER METASTATIC
     Dosage: 250 MG X 4 TABLETS
     Route: 048
     Dates: start: 20131001
  2. PREDNISOLON [Concomitant]
     Indication: PROSTATE CANCER METASTATIC
     Route: 048
     Dates: start: 20130910
  3. LEVODOPA COMP [Concomitant]
     Indication: PARKINSONISM
     Route: 048
  4. AMANTADIN [Concomitant]
     Indication: PRODUCT USED FOR UNKNOWN INDICATION
     Route: 048
  5. NEUPRO [Concomitant]
     Indication: PRODUCT USED FOR UNKNOWN INDICATION
     Route: 048

REACTIONS (2)
  - Prostate cancer [Fatal]
  - Coronary artery disease [Unknown]
